FAERS Safety Report 20051300 (Version 1)
Quarter: 2021Q4

REPORT INFORMATION
  Report Type: Other
  Country: CA (occurrence: CA)
  Receive Date: 20211110
  Receipt Date: 20211110
  Transmission Date: 20220303
  Serious: Yes (Other)
  Sender: FDA-Public Use
  Company Number: CA-CELLTRION INC.-2021CA014822

PATIENT

DRUGS (16)
  1. RITUXIMAB [Suspect]
     Active Substance: RITUXIMAB
     Indication: Rheumatoid arthritis
     Dosage: 1000 MG, 1 EVERY 15 DAYS
     Route: 042
  2. BENADRYL [Concomitant]
     Active Substance: DIPHENHYDRAMINE HYDROCHLORIDE
     Dosage: 50 MILLIGRAM
     Route: 048
  3. BOSWELLIA SERRATA/CURCUMA LONGA/DLPHENYLALANINE/ NATTOKINASE [Concomitant]
     Dosage: UNK
  4. CALCIUM [Concomitant]
     Active Substance: CALCIUM
  5. ECHINACEA [ECHINACEA SPP.] [Concomitant]
  6. IRON [Concomitant]
     Active Substance: IRON
  7. LACTOBACILLUS REUTERI [Concomitant]
     Active Substance: LACTOBACILLUS REUTERI
  8. LEUCOVORIN [Concomitant]
     Active Substance: LEUCOVORIN
  9. METHOTREXATE [Concomitant]
     Active Substance: METHOTREXATE
     Route: 037
  10. OMEPRAZOLE [Concomitant]
     Active Substance: OMEPRAZOLE
  11. PREDNISONE [Concomitant]
     Active Substance: PREDNISONE
  12. SOLU-MEDROL [Concomitant]
     Active Substance: METHYLPREDNISOLONE SODIUM SUCCINATE
     Dosage: 100 MILLIGRAM
  13. TYLENOL [Concomitant]
     Active Substance: ACETAMINOPHEN
     Dosage: 650 MILLIGRAM
     Route: 048
  14. VITAMIN C [Concomitant]
     Active Substance: ASCORBIC ACID
  15. VITAMIN D [Concomitant]
     Active Substance: VITAMIN D NOS
  16. VITAMINS NOS [Concomitant]
     Active Substance: VITAMINS

REACTIONS (3)
  - Osteoporosis [Unknown]
  - Spinal compression fracture [Unknown]
  - Off label use [Unknown]
